FAERS Safety Report 24999341 (Version 2)
Quarter: 2025Q1

REPORT INFORMATION
  Report Type: Spontaneous
  Country: US (occurrence: US)
  Receive Date: 20250222
  Receipt Date: 20250222
  Transmission Date: 20250409
  Serious: No
  Sender: SANOFI AVENTIS
  Company Number: US-SANOFI-02409113

PATIENT
  Age: 86 Year
  Sex: Male

DRUGS (2)
  1. TOUJEO [Suspect]
     Active Substance: INSULIN GLARGINE
     Indication: Diabetes mellitus
     Dosage: 14 IU, QD
     Dates: start: 2022
  2. TOUJEO [Suspect]
     Active Substance: INSULIN GLARGINE
     Dosage: 14 IU QD
     Route: 058

REACTIONS (1)
  - Expired product administered [Unknown]
